FAERS Safety Report 5397898-X (Version None)
Quarter: 2007Q3

REPORT INFORMATION
  Report Type: 
  Country: None (occurrence: None)
  Receive Date: 20070723
  Receipt Date: 20070723
  Transmission Date: 20080115
  Serious: Yes (Life-Threatening)
  Sender: FDA-Public Use
  Company Number: None

PATIENT
  Age: 20 Year
  Sex: Female
  Weight: 100 kg

DRUGS (2)
  1. VANCOMYCIN [Suspect]
     Indication: STAPHYLOCOCCAL INFECTION
     Dosage: 1 GRAM ONCE IV
     Route: 042
     Dates: start: 20070717, end: 20070717
  2. VANCOMYCIN [Suspect]
     Indication: STREPTOCOCCAL INFECTION
     Dosage: 1 GRAM ONCE IV
     Route: 042
     Dates: start: 20070717, end: 20070717

REACTIONS (1)
  - ANGIOEDEMA [None]
